APPROVED DRUG PRODUCT: ZOLPIDEM TARTRATE
Active Ingredient: ZOLPIDEM TARTRATE
Strength: 7.5MG
Dosage Form/Route: CAPSULE;ORAL
Application: N215721 | Product #001
Applicant: ALMATICA PHARMA INC
Approved: May 9, 2023 | RLD: Yes | RS: Yes | Type: RX